FAERS Safety Report 7366040-8 (Version None)
Quarter: 2011Q1

REPORT INFORMATION
  Report Type: 
  Country: None (occurrence: None)
  Receive Date: 20110322
  Receipt Date: 20110308
  Transmission Date: 20110831
  Serious: Yes (Hospitalization, Other)
  Sender: FDA-Public Use
  Company Number: US-JNJFOC-20070302183

PATIENT
  Sex: Female
  Weight: 22.88 kg

DRUGS (6)
  1. MESALAMINE [Concomitant]
     Indication: COLITIS ULCERATIVE
     Route: 048
  2. INFLIXIMAB [Suspect]
     Indication: COLITIS ULCERATIVE
     Route: 042
  3. INFLIXIMAB [Suspect]
     Route: 042
  4. MERCAPTOPURINE [Concomitant]
     Indication: COLITIS ULCERATIVE
  5. METRONIDAZOLE [Concomitant]
  6. CIPRO [Concomitant]

REACTIONS (2)
  - SYNCOPE [None]
  - COLITIS ULCERATIVE [None]
